FAERS Safety Report 24895307 (Version 1)
Quarter: 2025Q1

REPORT INFORMATION
  Report Type: Spontaneous
  Country: US (occurrence: US)
  Receive Date: 20250128
  Receipt Date: 20250128
  Transmission Date: 20250409
  Serious: No
  Sender: MYLAN
  Company Number: US-MYLANLABS-2025M1004859

PATIENT
  Age: 63 Year
  Sex: Male
  Weight: 78.02 kg

DRUGS (1)
  1. WIXELA INHUB [Suspect]
     Active Substance: FLUTICASONE PROPIONATE\SALMETEROL XINAFOATE
     Indication: Asthma
     Dosage: 250/50 MICROGRAM, BID (ONE PUFF TWICE A DAY)
     Route: 055
     Dates: start: 20241201

REACTIONS (2)
  - Drug ineffective [Unknown]
  - Device issue [Unknown]

NARRATIVE: CASE EVENT DATE: 20241201
